FAERS Safety Report 13350084 (Version 1)
Quarter: 2017Q1

REPORT INFORMATION
  Report Type: Spontaneous
  Country: US (occurrence: US)
  Receive Date: 20170320
  Receipt Date: 20170320
  Transmission Date: 20170429
  Serious: No
  Sender: FDA-Public Use
  Company Number: US-BAYER-2017-049518

PATIENT
  Age: 59 Year
  Sex: Male
  Weight: 82 kg

DRUGS (1)
  1. ALEVE [Suspect]
     Active Substance: NAPROXEN SODIUM
     Indication: PAIN
     Dosage: 4 DF, UNK
     Route: 048

REACTIONS (9)
  - Skin exfoliation [Recovered/Resolved]
  - Rash [Recovering/Resolving]
  - Dry skin [Recovered/Resolved]
  - Drug ineffective [Unknown]
  - Erythema [Unknown]
  - Pain [Unknown]
  - Off label use [Unknown]
  - Chapped lips [Recovering/Resolving]
  - Neuropathy peripheral [Not Recovered/Not Resolved]
